FAERS Safety Report 9277286 (Version 2)
Quarter: 2013Q2

REPORT INFORMATION
  Report Type: Report from Study
  Country: DE (occurrence: DE)
  Receive Date: 20130508
  Receipt Date: 20130508
  Transmission Date: 20140414
  Serious: Yes (Death, Hospitalization)
  Sender: FDA-Public Use
  Company Number: DE-ROCHE-1221862

PATIENT
  Age: 37 Year
  Sex: Male
  Weight: 72 kg

DRUGS (7)
  1. BEVACIZUMAB [Suspect]
     Indication: COLON CANCER
     Dosage: LAST ADMINISTRATION: 08/APR/2013
     Route: 042
     Dates: start: 20130408, end: 20130416
  2. FLUOROURACIL [Suspect]
     Indication: COLON CANCER
     Dosage: LAST ADMINISTRATION: 08/APR/2013
     Route: 042
     Dates: start: 20130408, end: 20130416
  3. OXALIPLATIN [Suspect]
     Indication: COLON CANCER
     Dosage: LAST ADMINISTRATION: 08/APR/2013
     Route: 042
     Dates: start: 20130408, end: 20130416
  4. FOLIC ACID [Suspect]
     Indication: COLON CANCER
     Dosage: LAST ADMINISTRATION: 08/APR/2013 (LUCOVORIN)
     Route: 042
     Dates: start: 20130408, end: 20130416
  5. IRINOTECAN [Suspect]
     Indication: COLON CANCER
     Dosage: LAST ADMINISTRATION: 08/APR/2013
     Route: 042
     Dates: start: 20130408, end: 20130416
  6. MORPHINE SULFATE [Concomitant]
     Indication: PAIN
     Route: 048
     Dates: start: 20130408
  7. CIPROFLOX [Concomitant]
     Route: 065
     Dates: start: 20130408

REACTIONS (1)
  - Hyperbilirubinaemia [Fatal]
